FAERS Safety Report 6073675-1 (Version None)
Quarter: 2009Q1

REPORT INFORMATION
  Report Type: 
  Country: None (occurrence: None)
  Receive Date: 20090211
  Receipt Date: 20090205
  Transmission Date: 20090719
  Serious: Yes (Other)
  Sender: FDA-Public Use
  Company Number: ES-PFIZER INC-2009166973

PATIENT

DRUGS (1)
  1. ATORVASTATIN CALCIUM [Suspect]
     Route: 048

REACTIONS (2)
  - COAGULOPATHY [None]
  - TRANSITIONAL CELL CARCINOMA [None]
